FAERS Safety Report 16223209 (Version 1)
Quarter: 2019Q2

REPORT INFORMATION
  Report Type: Spontaneous
  Country: US (occurrence: US)
  Receive Date: 20190420
  Receipt Date: 20190420
  Transmission Date: 20190711
  Serious: Yes (Hospitalization)
  Sender: FDA-Public Use
  Company Number: None

PATIENT
  Age: 43 Year
  Sex: Female
  Weight: 68.85 kg

DRUGS (1)
  1. ORILISSA [Suspect]
     Active Substance: ELAGOLIX SODIUM
     Indication: ENDOMETRIOSIS
     Dosage: ?          QUANTITY:1 TABLET(S);?
     Route: 048
     Dates: start: 20190414, end: 20190418

REACTIONS (6)
  - Nausea [None]
  - Diarrhoea [None]
  - Dyspnoea [None]
  - Tachycardia [None]
  - Hyperkalaemia [None]
  - Chest pain [None]

NARRATIVE: CASE EVENT DATE: 20190418
